FAERS Safety Report 19506584 (Version 1)
Quarter: 2021Q3

REPORT INFORMATION
  Report Type: Spontaneous
  Country: US (occurrence: US)
  Receive Date: 20210708
  Receipt Date: 20210708
  Transmission Date: 20211014
  Serious: Yes (Other)
  Sender: FDA-Public Use
  Company Number: None

PATIENT
  Age: 61 Year
  Sex: Female
  Weight: 80 kg

DRUGS (5)
  1. DOCETAXEL. [Suspect]
     Active Substance: DOCETAXEL
     Indication: HER2 POSITIVE BREAST CANCER
     Dosage: ?          OTHER FREQUENCY:ONCE;?
     Route: 041
     Dates: start: 20210421, end: 20210623
  2. DEXAMETHASONE (PREMEDICATION) [Concomitant]
     Dates: start: 20210421, end: 20210421
  3. GRANISETRON (PREMEDICATION) [Concomitant]
     Dates: start: 20210421, end: 20210421
  4. FAMOTIDINE (PREMEDICATION) [Concomitant]
     Dates: start: 20210421, end: 20210421
  5. DIPHENHYDRAMINE (PREMEDICATION) [Concomitant]
     Dates: start: 20210421, end: 20210421

REACTIONS (4)
  - Back pain [None]
  - Dyspnoea [None]
  - Chest discomfort [None]
  - Flushing [None]

NARRATIVE: CASE EVENT DATE: 20210421
